FAERS Safety Report 20987649 (Version 5)
Quarter: 2023Q1

REPORT INFORMATION
  Report Type: Spontaneous
  Country: ES (occurrence: ES)
  Receive Date: 20220621
  Receipt Date: 20230111
  Transmission Date: 20230417
  Serious: Yes (Hospitalization, Other)
  Sender: FDA-Public Use
  Company Number: None

PATIENT
  Age: 13 Year
  Sex: Female

DRUGS (4)
  1. MORPHINE SULFATE [Interacting]
     Active Substance: MORPHINE SULFATE
     Indication: Suicidal ideation
     Dosage: 300 MILLIGRAM, SINGLE
     Route: 048
  2. MORPHINE SULFATE [Interacting]
     Active Substance: MORPHINE SULFATE
     Dosage: 300 MILLIGRAM, SINGLE (DELAYED RELEASED)
     Route: 048
  3. TRAMADOL HYDROCHLORIDE [Interacting]
     Active Substance: TRAMADOL HYDROCHLORIDE
     Indication: Suicidal ideation
     Dosage: UNK, SINGLE
     Route: 065
  4. DULOXETINE [Suspect]
     Active Substance: DULOXETINE
     Indication: Suicide attempt
     Dosage: 600 MILLIGRAM
     Route: 065

REACTIONS (22)
  - Intentional overdose [Recovered/Resolved]
  - Suicide attempt [Recovered/Resolved]
  - Abdominal pain [Recovered/Resolved]
  - Vomiting [Recovered/Resolved]
  - Headache [Recovered/Resolved]
  - Somnolence [Recovered/Resolved]
  - Urinary retention [Recovered/Resolved]
  - Bradyphrenia [Recovered/Resolved]
  - Miosis [Recovered/Resolved]
  - Depressed level of consciousness [Not Recovered/Not Resolved]
  - Hyporesponsive to stimuli [Recovered/Resolved]
  - Bradypnoea [Recovered/Resolved]
  - Respiratory depression [Recovered/Resolved]
  - Respiratory depression [Recovered/Resolved]
  - Hyperamylasaemia [Recovered/Resolved]
  - Troponin increased [Recovering/Resolving]
  - Drug interaction [Recovered/Resolved]
  - Leukocytosis [Recovered/Resolved]
  - Overdose [Recovered/Resolved]
  - Cardiac disorder [Unknown]
  - Abdominal pain lower [Unknown]
  - Toxicity to various agents [Unknown]
